FAERS Safety Report 17159517 (Version 2)
Quarter: 2020Q1

REPORT INFORMATION
  Report Type: Spontaneous
  Country: GB (occurrence: GB)
  Receive Date: 20191216
  Receipt Date: 20200212
  Transmission Date: 20200409
  Serious: Yes (Other)
  Sender: FDA-Public Use
  Company Number: NVSC2019GB064393

PATIENT
  Age: 35 Year
  Sex: Female

DRUGS (6)
  1. IBRANCE [Suspect]
     Active Substance: PALBOCICLIB
     Indication: PRODUCT USED FOR UNKNOWN INDICATION
     Dosage: 100 MG, UNK
     Route: 065
     Dates: start: 201807
  2. IBRANCE [Suspect]
     Active Substance: PALBOCICLIB
     Dosage: UNK
     Route: 065
  3. LETROZOLE. [Suspect]
     Active Substance: LETROZOLE
     Indication: BREAST CANCER METASTATIC
     Dosage: UNK
     Route: 065
  4. DENOSUMAB [Suspect]
     Active Substance: DENOSUMAB
     Indication: BREAST CANCER METASTATIC
     Dosage: 1 OT, Q3MO (UNK, EVERY 3 MONTHS)
     Route: 065
  5. ZOLADEX [Suspect]
     Active Substance: GOSERELIN ACETATE
     Indication: BREAST CANCER METASTATIC
     Dosage: UNK
     Route: 065
  6. IBRANCE [Suspect]
     Active Substance: PALBOCICLIB
     Dosage: 75 MG, UNKNOWN
     Route: 065
     Dates: start: 201909

REACTIONS (3)
  - Neutropenic infection [Recovered/Resolved]
  - Neutropenia [Recovered/Resolved]
  - Upper respiratory tract infection [Recovered/Resolved]
